FAERS Safety Report 8132793-4 (Version None)
Quarter: 2012Q1

REPORT INFORMATION
  Report Type: 
  Country: None (occurrence: None)
  Receive Date: 20120213
  Receipt Date: 20120207
  Transmission Date: 20120608
  Serious: Yes (Death)
  Sender: FDA-Public Use
  Company Number: RU-MERCK-1202USA01198

PATIENT
  Age: 17 Year
  Sex: Male

DRUGS (1)
  1. PRIMAXIN [Suspect]
     Indication: ENDOCARDITIS
     Route: 065
     Dates: start: 20090909, end: 20090922

REACTIONS (1)
  - DRUG INEFFECTIVE [None]
